FAERS Safety Report 14292850 (Version 4)
Quarter: 2018Q1

REPORT INFORMATION
  Report Type: Report from Study
  Country: JP (occurrence: JP)
  Receive Date: 20171215
  Receipt Date: 20180124
  Transmission Date: 20180509
  Serious: Yes (Life-Threatening, Hospitalization)
  Sender: FDA-Public Use
  Company Number: JP-PFIZER INC-2017534571

PATIENT
  Age: 56 Year
  Sex: Female
  Weight: 154 kg

DRUGS (3)
  1. XALKORI [Suspect]
     Active Substance: CRIZOTINIB
     Dosage: 250 MG, 2X/DAY
     Route: 048
     Dates: start: 20141105, end: 20150722
  2. REPLAGAL [Concomitant]
     Active Substance: AGALSIDASE ALFA
     Dosage: 9.4 MG, 1X/DAY
  3. CEFEPIME [Concomitant]
     Active Substance: CEFEPIME HYDROCHLORIDE
     Dosage: UNK

REACTIONS (4)
  - Renal abscess [Recovered/Resolved]
  - Cardiac failure [Recovered/Resolved]
  - Lung abscess [Recovered/Resolved]
  - Liver abscess [Recovered/Resolved]

NARRATIVE: CASE EVENT DATE: 20150712
